FAERS Safety Report 16973845 (Version 1)
Quarter: 2019Q4

REPORT INFORMATION
  Report Type: Spontaneous
  Country: US (occurrence: US)
  Receive Date: 20191030
  Receipt Date: 20191030
  Transmission Date: 20200122
  Serious: No
  Sender: FDA-Public Use
  Company Number: US-AJANTA PHARMA USA INC.-2076169

PATIENT
  Age: 85 Year
  Sex: Female
  Weight: 68.18 kg

DRUGS (3)
  1. DULOXETINE (ANDA 208706) [Suspect]
     Active Substance: DULOXETINE
     Indication: DEPRESSION
     Route: 048
     Dates: start: 20190702
  2. GABAPENTIN. [Concomitant]
     Active Substance: GABAPENTIN
  3. ALEVE [Concomitant]
     Active Substance: NAPROXEN SODIUM

REACTIONS (5)
  - Facial pain [Recovered/Resolved]
  - Skin disorder [Recovered/Resolved]
  - Subcutaneous abscess [Recovered/Resolved]
  - Oral discomfort [Recovered/Resolved]
  - Crying [Not Recovered/Not Resolved]

NARRATIVE: CASE EVENT DATE: 201907
